FAERS Safety Report 23604304 (Version 1)
Quarter: 2024Q1

REPORT INFORMATION
  Report Type: Spontaneous
  Country: AU (occurrence: AU)
  Receive Date: 20240307
  Receipt Date: 20240307
  Transmission Date: 20240409
  Serious: Yes (Other)
  Sender: FDA-Public Use
  Company Number: AU-TEVA-VS-3148775

PATIENT
  Age: 56 Year
  Sex: Female

DRUGS (1)
  1. AZACITIDINE [Suspect]
     Active Substance: AZACITIDINE
     Indication: Product used for unknown indication
     Route: 065

REACTIONS (4)
  - Acute myeloid leukaemia [Unknown]
  - Anaemia [Unknown]
  - Thrombocytopenia [Unknown]
  - Febrile neutropenia [Unknown]
